FAERS Safety Report 7352426-4 (Version None)
Quarter: 2011Q1

REPORT INFORMATION
  Report Type: 
  Country: None (occurrence: None)
  Receive Date: 20110307
  Receipt Date: 20110224
  Transmission Date: 20110831
  Serious: Yes (Other)
  Sender: FDA-Public Use
  Company Number: 028265

PATIENT
  Age: 78 Year
  Sex: Male

DRUGS (6)
  1. OMEPRAZOLE [Suspect]
  2. OXYBUTYNIN [Concomitant]
  3. LEVOCETIRIZINE DIHYDROCHLORIDE [Concomitant]
  4. NIFEDICAL [Concomitant]
  5. TERAZOSIN [Concomitant]
  6. LANSOPRAZOLE [Concomitant]

REACTIONS (1)
  - LICHENOID KERATOSIS [None]
